FAERS Safety Report 23159509 (Version 2)
Quarter: 2023Q4

REPORT INFORMATION
  Report Type: Other
  Country: IN (occurrence: None)
  Receive Date: 20231108
  Receipt Date: 20231113
  Transmission Date: 20240109
  Serious: Yes (Other)
  Sender: FDA-Public Use
  Company Number: IN-ROCHE-3453516

PATIENT

DRUGS (8)
  1. RITUXIMAB [Suspect]
     Active Substance: RITUXIMAB
     Indication: Lymphoma
     Route: 065
  2. RITUXIMAB [Suspect]
     Active Substance: RITUXIMAB
     Indication: Breast cancer
  3. CISPLATIN [Suspect]
     Active Substance: CISPLATIN
     Indication: Lymphoma
     Route: 065
  4. CISPLATIN [Suspect]
     Active Substance: CISPLATIN
     Indication: Breast cancer
  5. FLUOROURACIL [Suspect]
     Active Substance: FLUOROURACIL
     Indication: Lymphoma
     Route: 065
  6. FLUOROURACIL [Suspect]
     Active Substance: FLUOROURACIL
     Indication: Breast cancer
  7. VINCRISTINE [Suspect]
     Active Substance: VINCRISTINE
     Indication: Lymphoma
     Route: 065
  8. VINCRISTINE [Suspect]
     Active Substance: VINCRISTINE
     Indication: Breast cancer

REACTIONS (11)
  - Stevens-Johnson syndrome [Unknown]
  - Toxic epidermal necrolysis [Unknown]
  - Febrile neutropenia [Unknown]
  - Rash erythematous [Unknown]
  - Macule [Unknown]
  - Dermatitis [Unknown]
  - Vomiting [Unknown]
  - Alopecia [Unknown]
  - Neuropathy peripheral [Unknown]
  - Bronchospasm [Unknown]
  - Chest pain [Unknown]
